FAERS Safety Report 8447308-0 (Version None)
Quarter: 2012Q2

REPORT INFORMATION
  Report Type: 
  Country: None (occurrence: None)
  Receive Date: 20120619
  Receipt Date: 20120613
  Transmission Date: 20120825
  Serious: Yes (Other)
  Sender: FDA-Public Use
  Company Number: PHHY2011CA73433

PATIENT
  Sex: Male

DRUGS (2)
  1. SANDOSTATIN LAR [Suspect]
     Dosage: 60 MG, QMO
     Route: 030
  2. SANDOSTATIN LAR [Suspect]
     Indication: NEUROENDOCRINE TUMOUR
     Dosage: 30 MG, EVERY 4 WEEKS
     Route: 030
     Dates: start: 20110810

REACTIONS (12)
  - DIARRHOEA [None]
  - PULMONARY EMBOLISM [None]
  - BLOOD BLISTER [None]
  - HAEMORRHAGE [None]
  - BLOOD PRESSURE SYSTOLIC INCREASED [None]
  - TREMOR [None]
  - FAECES PALE [None]
  - DYSPNOEA [None]
  - HYPERHIDROSIS [None]
  - HEPATIC LESION [None]
  - ABDOMINAL PAIN LOWER [None]
  - ASTHENIA [None]
